FAERS Safety Report 6070836-2 (Version None)
Quarter: 2009Q1

REPORT INFORMATION
  Report Type: 
  Country: None (occurrence: None)
  Receive Date: 20090209
  Receipt Date: 20080904
  Transmission Date: 20090719
  Serious: No
  Sender: FDA-Public Use
  Company Number: A0745946A

PATIENT
  Sex: Male

DRUGS (2)
  1. PAXIL [Suspect]
     Indication: ANXIETY DISORDER
     Dosage: 5MG PER DAY
     Route: 048
     Dates: start: 20080801, end: 20080801
  2. UNKNOWN [Concomitant]

REACTIONS (2)
  - FATIGUE [None]
  - PARAESTHESIA [None]
